FAERS Safety Report 6934424-5 (Version None)
Quarter: 2010Q3

REPORT INFORMATION
  Report Type: 
  Country: None (occurrence: None)
  Receive Date: 20100820
  Receipt Date: 20100813
  Transmission Date: 20110219
  Serious: Yes (Hospitalization)
  Sender: FDA-Public Use
  Company Number: B0667749A

PATIENT
  Sex: Male
  Weight: 55 kg

DRUGS (19)
  1. ALKERAN [Suspect]
     Indication: CORD BLOOD TRANSPLANT THERAPY
     Dosage: 40MG PER DAY
     Route: 042
     Dates: start: 20040705, end: 20040706
  2. FLUDARA [Suspect]
     Indication: CORD BLOOD TRANSPLANT THERAPY
     Dosage: 25MG PER DAY
     Route: 042
     Dates: start: 20040630, end: 20040704
  3. CYCLOSPORINE [Suspect]
     Indication: IMMUNOSUPPRESSION
     Dosage: 200MG PER DAY
     Route: 048
     Dates: start: 20040803, end: 20040909
  4. CYCLOSPORINE [Suspect]
     Dosage: 150MG PER DAY
     Route: 048
     Dates: start: 20040910, end: 20040923
  5. CYCLOSPORINE [Suspect]
     Dosage: 100MG PER DAY
     Route: 048
     Dates: start: 20040924, end: 20041223
  6. CYCLOSPORINE [Suspect]
     Dosage: 50MG PER DAY
     Route: 048
     Dates: start: 20041224, end: 20050311
  7. CYCLOSPORINE [Suspect]
     Dosage: 160MG PER DAY
     Dates: start: 20040707, end: 20040712
  8. CYCLOSPORINE [Suspect]
     Dosage: 120MG PER DAY
     Dates: start: 20040713, end: 20040802
  9. GRAN [Concomitant]
     Dates: start: 20040709, end: 20040813
  10. GASTER [Concomitant]
     Dosage: 20MG PER DAY
     Route: 048
     Dates: start: 20040625, end: 20041021
  11. COTRIM [Concomitant]
     Dosage: 4IUAX PER DAY
     Route: 048
     Dates: start: 20040628, end: 20040706
  12. CIPROFLOXACIN HCL [Concomitant]
     Dosage: 600MG PER DAY
     Route: 048
     Dates: start: 20040630, end: 20040729
  13. DIFLUCAN [Concomitant]
     Dosage: 100MG PER DAY
     Route: 048
     Dates: start: 20040625, end: 20040716
  14. PRODIF [Concomitant]
     Dosage: 400MG PER DAY
     Route: 042
     Dates: start: 20040717, end: 20040729
  15. CARBENIN [Concomitant]
     Dosage: 2G PER DAY
     Route: 042
     Dates: start: 20040717, end: 20040802
  16. VANCOMYCIN [Concomitant]
     Dosage: 2G PER DAY
     Route: 042
     Dates: start: 20040718, end: 20040802
  17. MEROPEN [Concomitant]
     Dosage: 2G PER DAY
     Route: 042
     Dates: start: 20040806, end: 20040813
  18. FUNGUARD [Concomitant]
     Dosage: 150MG PER DAY
     Route: 042
     Dates: start: 20040806, end: 20040813
  19. OMEPRAL [Concomitant]
     Dosage: 10MG PER DAY
     Route: 042
     Dates: start: 20041022, end: 20041224

REACTIONS (2)
  - CYTOMEGALOVIRUS INFECTION [None]
  - FEBRILE NEUTROPENIA [None]
